FAERS Safety Report 8422609-0 (Version None)
Quarter: 2012Q2

REPORT INFORMATION
  Report Type: 
  Country: None (occurrence: None)
  Receive Date: 20120608
  Receipt Date: 20120606
  Transmission Date: 20120825
  Serious: Yes (Death, Hospitalization)
  Sender: FDA-Public Use
  Company Number: GB-ROCHE-1060210

PATIENT
  Sex: Female

DRUGS (2)
  1. LUCENTIS [Suspect]
     Route: 050
     Dates: start: 20100728
  2. LUCENTIS [Suspect]
     Indication: AGE-RELATED MACULAR DEGENERATION
     Dosage: 11 TREATMENTS IN 24 MONTHS
     Route: 050
     Dates: start: 20090403

REACTIONS (2)
  - CONVULSION [None]
  - DEATH [None]
